FAERS Safety Report 12834220 (Version 1)
Quarter: 2016Q4

REPORT INFORMATION
  Report Type: Spontaneous
  Country: FI (occurrence: IS)
  Receive Date: 20161010
  Receipt Date: 20161010
  Transmission Date: 20170207
  Serious: Yes (Death)
  Sender: FDA-Public Use
  Company Number: IS-TEVA-688978ISR

PATIENT
  Age: 26 Year
  Sex: Male

DRUGS (2)
  1. FENTANYL ACTAVIS [Suspect]
     Active Substance: FENTANYL
     Route: 062
  2. FENTANYL RATIOPHARM [Suspect]
     Active Substance: FENTANYL
     Route: 061

REACTIONS (2)
  - Death [Fatal]
  - Incorrect route of drug administration [Unknown]

NARRATIVE: CASE EVENT DATE: 201608
